FAERS Safety Report 15531767 (Version 1)
Quarter: 2018Q4

REPORT INFORMATION
  Report Type: Spontaneous
  Country: FR (occurrence: FR)
  Receive Date: 20181019
  Receipt Date: 20181019
  Transmission Date: 20190205
  Serious: Yes (Other)
  Sender: FDA-Public Use
  Company Number: FR-TEVA-2018-FR-966014

PATIENT
  Age: 35 Year
  Sex: Female
  Weight: 63 kg

DRUGS (1)
  1. TERBINAFINE TEVA 250 MG, COMPRIM? S?CABLE [Suspect]
     Active Substance: TERBINAFINE
     Indication: FUNGAL INFECTION
     Dosage: 250 MILLIGRAM DAILY;
     Route: 048
     Dates: start: 20180729

REACTIONS (2)
  - Headache [Not Recovered/Not Resolved]
  - Skin exfoliation [Not Recovered/Not Resolved]

NARRATIVE: CASE EVENT DATE: 20180804
